FAERS Safety Report 4677515-4 (Version None)
Quarter: 2005Q2

REPORT INFORMATION
  Report Type: 
  Country: None (occurrence: None)
  Receive Date: 20050525
  Receipt Date: 20050525
  Transmission Date: 20051028
  Serious: Yes (Hospitalization)
  Sender: FDA-Public Use
  Company Number: None

PATIENT
  Age: 71 Year
  Sex: Male
  Weight: 75.3 kg

DRUGS (10)
  1. COUMADIN [Suspect]
  2. ASPIRIN [Concomitant]
  3. ATENOLOL [Concomitant]
  4. DOCUSATE CAP [Concomitant]
  5. INSULIN REGULAR INJ [Concomitant]
  6. MAGNESIUM GLUCONATE TAB [Concomitant]
  7. OMEPRAZOLE [Concomitant]
  8. PROMETHAZINE [Concomitant]
  9. SIMVASTATIN TAB [Concomitant]
  10. SODIUM CHLORIDE [Concomitant]

REACTIONS (1)
  - INTERNATIONAL NORMALISED RATIO INCREASED [None]
